FAERS Safety Report 4437809-4 (Version None)
Quarter: 2004Q3

REPORT INFORMATION
  Report Type: 
  Country: None (occurrence: None)
  Receive Date: 20040728
  Receipt Date: 20040308
  Transmission Date: 20050211
  Serious: No
  Sender: FDA-Public Use
  Company Number: USA040361225

PATIENT
  Age: 6 Year
  Sex: Male

DRUGS (1)
  1. STRATTERA [Suspect]
     Dosage: 36 MG DAY
     Dates: start: 20040201, end: 20040301

REACTIONS (3)
  - ANGER [None]
  - DRUG INEFFECTIVE [None]
  - PERSONALITY CHANGE [None]
